FAERS Safety Report 15900873 (Version 2)
Quarter: 2019Q1

REPORT INFORMATION
  Report Type: Spontaneous
  Country: US (occurrence: US)
  Receive Date: 20190201
  Receipt Date: 20190301
  Transmission Date: 20190417
  Serious: Yes (Death, Hospitalization)
  Sender: FDA-Public Use
  Company Number: US-SAOL THERAPEUTICS-2019SAO00041

PATIENT
  Age: 14 Year
  Sex: Female

DRUGS (1)
  1. LIORESAL [Suspect]
     Active Substance: BACLOFEN
     Indication: MUSCLE SPASTICITY
     Dosage: 743 ?G, \DAY
     Route: 037

REACTIONS (2)
  - Apallic syndrome [Unknown]
  - Asphyxia [Fatal]

NARRATIVE: CASE EVENT DATE: 20190123
